FAERS Safety Report 18312199 (Version 1)
Quarter: 2020Q3

REPORT INFORMATION
  Report Type: Report from Study
  Country: US (occurrence: US)
  Receive Date: 20200925
  Receipt Date: 20200925
  Transmission Date: 20201103
  Serious: No
  Sender: FDA-Public Use
  Company Number: NVSC2020US259104

PATIENT
  Sex: Female

DRUGS (2)
  1. COSENTYX [Suspect]
     Active Substance: SECUKINUMAB
     Indication: PSORIASIS
     Dosage: 300 MG, OTHER (Q WEEKLY X 5 WEEKS THEN 300 MG Q 4 WEEKS) (BENEATH THE SKIN)
     Route: 058
     Dates: start: 20200311
  2. COSENTYX [Suspect]
     Active Substance: SECUKINUMAB
     Dosage: 150 MG, BIW
     Route: 058

REACTIONS (3)
  - Psoriasis [Unknown]
  - Skin abrasion [Unknown]
  - Muscle spasms [Unknown]
